FAERS Safety Report 16760501 (Version 1)
Quarter: 2019Q4

REPORT INFORMATION
  Report Type: Spontaneous
  Country: US (occurrence: US)
  Receive Date: 20190830
  Receipt Date: 20190830
  Transmission Date: 20200122
  Serious: Yes (Disabling, Other)
  Sender: FDA-Public Use
  Company Number: None

PATIENT
  Age: 67 Year
  Sex: Female
  Weight: 39.6 kg

DRUGS (6)
  1. MELATONIN [Concomitant]
     Active Substance: MELATONIN
  2. VITAMIN D [Concomitant]
     Active Substance: VITAMIN D NOS
  3. METHADONE [Suspect]
     Active Substance: METHADONE HYDROCHLORIDE
     Indication: SHORT-BOWEL SYNDROME
     Dosage: ?          QUANTITY:9 TABLET(S);?
     Route: 048
  4. DAILY VITAMIN [Concomitant]
     Active Substance: VITAMINS
  5. METHADONE [Suspect]
     Active Substance: METHADONE HYDROCHLORIDE
     Indication: PAIN
     Dosage: ?          QUANTITY:9 TABLET(S);?
     Route: 048
  6. VITAMIN B [Concomitant]
     Active Substance: VITAMIN B

REACTIONS (1)
  - Treatment failure [None]

NARRATIVE: CASE EVENT DATE: 20160901
